FAERS Safety Report 13316884 (Version 2)
Quarter: 2017Q3

REPORT INFORMATION
  Report Type: Report from Study
  Country: CA (occurrence: CA)
  Receive Date: 20170310
  Receipt Date: 20170710
  Transmission Date: 20171127
  Serious: Yes (Hospitalization, Other)
  Sender: FDA-Public Use
  Company Number: CA-ROCHE-1695091

PATIENT
  Age: 67 Year
  Sex: Female
  Weight: 79.1 kg

DRUGS (13)
  1. CLONAZEPAM. [Concomitant]
     Active Substance: CLONAZEPAM
  2. LASIX [Concomitant]
     Active Substance: FUROSEMIDE
  3. ACTEMRA [Suspect]
     Active Substance: TOCILIZUMAB
     Indication: RHEUMATOID ARTHRITIS
     Dosage: LAST DOSE 02/DEC/2016
     Route: 042
     Dates: start: 20151221
  4. METFORMIN [Concomitant]
     Active Substance: METFORMIN HYDROCHLORIDE
  5. PANTOPRAZOLE [Concomitant]
     Active Substance: PANTOPRAZOLE
  6. HYDROMORPHONE [Concomitant]
     Active Substance: HYDROMORPHONE
  7. ATENOLOL. [Concomitant]
     Active Substance: ATENOLOL
  8. LEVOTHYROXINE. [Concomitant]
     Active Substance: LEVOTHYROXINE
  9. AMLODIPINE [Concomitant]
     Active Substance: AMLODIPINE BESYLATE
  10. OXYBUTYNIN [Concomitant]
     Active Substance: OXYBUTYNIN
  11. ACETYLSALICYLIC ACID [Concomitant]
     Active Substance: ASPIRIN
     Route: 065
  12. ATORVASTATIN [Concomitant]
     Active Substance: ATORVASTATIN
  13. PREDNISONE. [Concomitant]
     Active Substance: PREDNISONE

REACTIONS (15)
  - Blood pressure systolic increased [Unknown]
  - Rash [Recovered/Resolved]
  - Weight fluctuation [Not Recovered/Not Resolved]
  - Arthralgia [Unknown]
  - Pneumonia [Recovered/Resolved]
  - Heart rate decreased [Unknown]
  - Pain [Unknown]
  - Rash generalised [Not Recovered/Not Resolved]
  - Cough [Not Recovered/Not Resolved]
  - Pneumonia [Unknown]
  - Skin ulcer [Recovering/Resolving]
  - Blood pressure increased [Unknown]
  - Gastroenteritis viral [Not Recovered/Not Resolved]
  - Myocardial infarction [Unknown]
  - Skin ulcer [Not Recovered/Not Resolved]

NARRATIVE: CASE EVENT DATE: 2016
